APPROVED DRUG PRODUCT: FEBUXOSTAT
Active Ingredient: FEBUXOSTAT
Strength: 80MG
Dosage Form/Route: TABLET;ORAL
Application: A212924 | Product #002 | TE Code: AB
Applicant: ALKEM LABORATORIES LTD
Approved: Dec 7, 2021 | RLD: No | RS: No | Type: RX